FAERS Safety Report 8050721-7 (Version None)
Quarter: 2012Q1

REPORT INFORMATION
  Report Type: 
  Country: None (occurrence: None)
  Receive Date: 20120117
  Receipt Date: 20120117
  Transmission Date: 20120608
  Serious: Yes (Hospitalization)
  Sender: FDA-Public Use
  Company Number: None

PATIENT

DRUGS (6)
  1. PRADAXA [Suspect]
     Indication: ATRIAL FIBRILLATION
     Dosage: 150MG
     Route: 048
  2. NORVASC [Concomitant]
     Route: 048
  3. ZOCOR [Concomitant]
  4. ADVAIR DISKUS 100/50 [Concomitant]
  5. ASPIRIN [Concomitant]
     Route: 048
  6. COREG [Concomitant]

REACTIONS (1)
  - LOWER GASTROINTESTINAL HAEMORRHAGE [None]
